FAERS Safety Report 6314378-5 (Version None)
Quarter: 2009Q3

REPORT INFORMATION
  Report Type: 
  Country: None (occurrence: None)
  Receive Date: 20090817
  Receipt Date: 20090806
  Transmission Date: 20100115
  Serious: Yes (Hospitalization)
  Sender: FDA-Public Use
  Company Number: 8050209

PATIENT
  Age: 87 Year
  Sex: Female

DRUGS (10)
  1. KEPPRA [Suspect]
     Indication: EPILEPSY
     Dosage: 1 G D PO
     Route: 048
     Dates: start: 20081229, end: 20090306
  2. KEPPRA [Suspect]
     Indication: EPILEPSY
     Dosage: 2 G D PO
     Route: 048
     Dates: start: 20090307, end: 20090322
  3. KEPPRA [Suspect]
     Indication: EPILEPSY
     Dosage: 750 MG D PO
     Route: 048
     Dates: start: 20090323, end: 20090327
  4. ELISOR [Suspect]
     Dosage: PO
     Route: 048
     Dates: start: 20081228, end: 20090318
  5. PLAVIX [Suspect]
     Dosage: PO
     Route: 048
     Dates: start: 20081229, end: 20090311
  6. TEGRETOL [Suspect]
     Dosage: PO
     Route: 048
     Dates: start: 20090101, end: 20090307
  7. KARDEGIC [Concomitant]
  8. OGASTORO [Concomitant]
  9. SELOKEN [Concomitant]
  10. RIVOTRIL [Concomitant]

REACTIONS (3)
  - EOSINOPHILIA [None]
  - PRURITUS [None]
  - TOXIC SKIN ERUPTION [None]
